FAERS Safety Report 12237249 (Version 1)
Quarter: 2016Q2

REPORT INFORMATION
  Report Type: Spontaneous
  Country: US (occurrence: None)
  Receive Date: 20160404
  Receipt Date: 20160404
  Transmission Date: 20160815
  Serious: No
  Sender: FDA-Public Use
  Company Number: None

PATIENT
  Age: 81 Year
  Sex: Female
  Weight: 82.56 kg

DRUGS (1)
  1. ALENDRONATE SODIUM. [Suspect]
     Active Substance: ALENDRONATE SODIUM
     Indication: BONE SCAN
     Dosage: 1 PILL/ONCE PER WEEK
     Route: 048
     Dates: start: 201512, end: 201603

REACTIONS (3)
  - Arthralgia [None]
  - Musculoskeletal pain [None]
  - Headache [None]

NARRATIVE: CASE EVENT DATE: 20151216
